FAERS Safety Report 22143662 (Version 3)
Quarter: 2024Q4

REPORT INFORMATION
  Report Type: Report from Study
  Country: US (occurrence: US)
  Receive Date: 20230327
  Receipt Date: 20241210
  Transmission Date: 20250115
  Serious: Yes (Other)
  Sender: HLS THERAPEUTICS
  Company Number: US-HLS-202300083

PATIENT
  Age: 64 Year
  Sex: Male

DRUGS (2)
  1. CLOZARIL [Suspect]
     Active Substance: CLOZAPINE
     Indication: Product used for unknown indication
     Dosage: 100MG 30 DAY SUPPLY 120 QUANTITY
     Route: 065
  2. CLOZARIL [Suspect]
     Active Substance: CLOZAPINE
     Indication: Product used for unknown indication
     Dosage: 1OOMG- 5 TABLETS DAILY
     Route: 065

REACTIONS (6)
  - Dementia Alzheimer^s type [Unknown]
  - Lower respiratory tract infection [Recovering/Resolving]
  - Product dose omission issue [Not Recovered/Not Resolved]
  - Schizophrenia [Recovering/Resolving]
  - Somnolence [Not Recovered/Not Resolved]
  - White blood cell count increased [Unknown]

NARRATIVE: CASE EVENT DATE: 20241021
